FAERS Safety Report 4363818-X (Version None)
Quarter: 2004Q2

REPORT INFORMATION
  Report Type: 
  Country: None (occurrence: None)
  Receive Date: 20040521
  Receipt Date: 20040426
  Transmission Date: 20050107
  Serious: Yes (Hospitalization)
  Sender: FDA-Public Use
  Company Number: 600992

PATIENT
  Age: 65 Year
  Sex: Female
  Weight: 70.3075 kg

DRUGS (30)
  1. TISSEEL VH KIT [Suspect]
     Indication: MITRAL VALVE REPAIR
     Dosage: ONCE
     Dates: start: 20030918, end: 20030918
  2. CORDARONE [Concomitant]
  3. ALTACE [Concomitant]
  4. FOLGARD [Concomitant]
  5. CRESTOR [Concomitant]
  6. AMICAR [Concomitant]
  7. PROTAMINE SULFATE [Concomitant]
  8. LASIX [Concomitant]
  9. VANCOMYCIN [Concomitant]
  10. COUMADIN [Concomitant]
  11. HEPARIN [Concomitant]
  12. MANNITOL [Concomitant]
  13. SODIUM BICARBONATE [Concomitant]
  14. FENTANYL [Concomitant]
  15. PANCURONIUM [Concomitant]
  16. MIDAZOLAM HCL [Concomitant]
  17. NORMOSOL [Concomitant]
  18. APROTININ [Concomitant]
  19. CALCIUM [Concomitant]
  20. POTASSIUM CHLORIDE [Concomitant]
  21. PHENYLPHERINE [Concomitant]
  22. ATRACURIUM BESYLATE [Concomitant]
  23. CARDIOPLEGIA [Concomitant]
  24. NOREPINEPHRINE [Concomitant]
  25. RED BLOOD CELLS [Concomitant]
  26. PLATELETS [Concomitant]
  27. CELL SAVER [Concomitant]
  28. ICED SALINE SLUSH [Concomitant]
  29. COSGROVE RING [Concomitant]
  30. ETHIBOND [Concomitant]

REACTIONS (4)
  - HAEMOLYSIS [None]
  - POST PROCEDURAL COMPLICATION [None]
  - RENAL FAILURE ACUTE [None]
  - THROMBOCYTOPENIA [None]
